FAERS Safety Report 10149422 (Version 3)
Quarter: 2014Q3

REPORT INFORMATION
  Report Type: Spontaneous
  Country: IN (occurrence: None)
  Receive Date: 20140430
  Receipt Date: 20140730
  Transmission Date: 20150326
  Serious: Yes (Other)
  Sender: FDA-Public Use
  Company Number: AUR-APL-2014-05158

PATIENT
  Age: 37 Year
  Sex: Male

DRUGS (1)
  1. CIPROFLOXACIN. [Suspect]
     Active Substance: CIPROFLOXACIN
     Indication: PYREXIA

REACTIONS (6)
  - Dermatitis bullous [None]
  - Drug hypersensitivity [None]
  - Cross sensitivity reaction [None]
  - Skin hyperpigmentation [None]
  - Drug eruption [None]
  - Erythema [None]
